FAERS Safety Report 4544624-X (Version None)
Quarter: 2004Q4

REPORT INFORMATION
  Report Type: 
  Country: None (occurrence: None)
  Receive Date: 20041230
  Receipt Date: 20041203
  Transmission Date: 20050328
  Serious: Yes (Other)
  Sender: FDA-Public Use
  Company Number: 2004110443

PATIENT
  Sex: Female

DRUGS (5)
  1. PROVERA [Suspect]
     Indication: HORMONE REPLACEMENT THERAPY
  2. ESTROGENS ESTERIFIED (ESTROGENS ESTERIFIED) [Suspect]
     Indication: HORMONE REPLACEMENT THERAPY
  3. ESTRATEST HS (ESTROGENS ESTERIFIED, METHULTESTOSTERONE) [Suspect]
     Indication: HORMONE REPLACEMENT THERAPY
  4. CONJUGATED ESTROGENS [Suspect]
     Indication: HORMONE REPLACEMENT THERAPY
  5. PROVELLA-14 (ESTROGENS CONJUGATED), MEDROXYPROGESTERONE ACETATE) [Suspect]
     Indication: HORMONE REPLACEMENT THERAPY

REACTIONS (1)
  - BREAST CANCER FEMALE [None]
